FAERS Safety Report 7365405-8 (Version None)
Quarter: 2011Q1

REPORT INFORMATION
  Report Type: 
  Country: None (occurrence: None)
  Receive Date: 20110322
  Receipt Date: 20050222
  Transmission Date: 20110831
  Serious: No
  Sender: FDA-Public Use
  Company Number: 2005BI004237

PATIENT
  Age: 46 Year
  Sex: Female

DRUGS (2)
  1. TYSABRI [Suspect]
     Route: 042
     Dates: start: 20101216
  2. TYSABRI [Suspect]
     Indication: MULTIPLE SCLEROSIS
     Route: 042
     Dates: start: 20050221

REACTIONS (2)
  - FATIGUE [None]
  - HEADACHE [None]
